FAERS Safety Report 23180158 (Version 2)
Quarter: 2023Q4

REPORT INFORMATION
  Report Type: Report from Study
  Country: CN (occurrence: CN)
  Receive Date: 20231114
  Receipt Date: 20231121
  Transmission Date: 20240110
  Serious: Yes (Other)
  Sender: FDA-Public Use
  Company Number: CN-UCBSA-2023046941

PATIENT
  Age: 10 Year
  Sex: Female
  Weight: 30 kg

DRUGS (9)
  1. LACOSAMIDE [Suspect]
     Active Substance: LACOSAMIDE
     Indication: Epilepsy
     Dosage: 50 MILLIGRAM/ DAY
     Dates: start: 20230222, end: 20230226
  2. LACOSAMIDE [Suspect]
     Active Substance: LACOSAMIDE
     Dosage: 100 MILLIGRAM/DAY
     Dates: start: 20230227, end: 20230305
  3. LACOSAMIDE [Suspect]
     Active Substance: LACOSAMIDE
     Dosage: 150 MILLIGRAM/DAY
     Dates: start: 20230306, end: 20230314
  4. LACOSAMIDE [Suspect]
     Active Substance: LACOSAMIDE
     Dosage: 200 MILLIGRAM/DAY
     Dates: start: 20230315, end: 20230809
  5. VITAMIN B6 [Concomitant]
     Active Substance: PYRIDOXINE HYDROCHLORIDE
     Indication: Prophylaxis
     Dosage: 100 MILLIGRAM, ONCE DAILY (QD)
     Dates: start: 20230221, end: 20230221
  6. MIDAZOLAM [Concomitant]
     Active Substance: MIDAZOLAM
     Indication: Epilepsy
     Dosage: 20 MILLIGRAM AS NEEDED
     Dates: start: 20230228, end: 20230320
  7. ZONISAMIDE [Concomitant]
     Active Substance: ZONISAMIDE
     Indication: Epilepsy
     Dosage: 50 MILLIGRAM, 2X/DAY (BID)
     Dates: start: 20230303, end: 20230307
  8. ZONISAMIDE [Concomitant]
     Active Substance: ZONISAMIDE
     Dosage: 75 MILLIGRAM, 2X/DAY (BID)
     Dates: start: 20230308, end: 20230316
  9. ZONISAMIDE [Concomitant]
     Active Substance: ZONISAMIDE
     Indication: Epilepsy
     Dosage: 100 MILLIGRAM, 2X/DAY (BID)
     Dates: start: 20230317, end: 20230809

REACTIONS (3)
  - Haemorrhage intracranial [Unknown]
  - Hepatic function abnormal [Recovering/Resolving]
  - Off label use [Unknown]

NARRATIVE: CASE EVENT DATE: 20230222
